FAERS Safety Report 13148527 (Version 7)
Quarter: 2019Q1

REPORT INFORMATION
  Report Type: Report from Study
  Country: JP (occurrence: JP)
  Receive Date: 20170125
  Receipt Date: 20190311
  Transmission Date: 20190417
  Serious: Yes (Other)
  Sender: FDA-Public Use
  Company Number: JP-VIFOR (INTERNATIONAL) INC.-VIT-2017-00500

PATIENT
  Age: 63 Year
  Sex: Male
  Weight: 69.6 kg

DRUGS (25)
  1. EPOETIN ALFA BS [Suspect]
     Active Substance: ERYTHROPOIETIN
     Dates: start: 20170420, end: 20170523
  2. LOXOPROFEN SODIUM [Concomitant]
     Active Substance: LOXOPROFEN SODIUM
     Route: 048
     Dates: start: 20160528, end: 20160816
  3. TALION [Concomitant]
     Route: 048
     Dates: start: 20160610
  4. BONALON [Concomitant]
     Active Substance: ALENDRONATE SODIUM
     Route: 048
     Dates: start: 20170410
  5. EPOETIN ALFA BS [Suspect]
     Active Substance: ERYTHROPOIETIN
     Dates: start: 20170525, end: 20170606
  6. SUPLATAST TOSILATE [Concomitant]
     Active Substance: SUPLATAST TOSILATE
     Route: 048
  7. PREDNISOLONE. [Concomitant]
     Active Substance: PREDNISOLONE
     Route: 048
     Dates: end: 20170302
  8. VELPHORO [Suspect]
     Active Substance: FERRIC OXYHYDROXIDE
     Route: 048
     Dates: start: 20160924
  9. ALFACALCIDOL [Concomitant]
     Active Substance: ALFACALCIDOL
     Route: 048
     Dates: end: 20170522
  10. ALFACALCIDOL [Concomitant]
     Active Substance: ALFACALCIDOL
     Route: 048
     Dates: start: 20170523
  11. L CARTIN [Suspect]
     Active Substance: LEVOCARNITINE HYDROCHLORIDE
     Dates: start: 20160510, end: 20160908
  12. NEXIUM [Concomitant]
     Active Substance: ESOMEPRAZOLE MAGNESIUM
     Indication: PROPHYLAXIS
     Route: 048
  13. REBAMIPIDE [Concomitant]
     Active Substance: REBAMIPIDE
     Indication: PROPHYLAXIS
     Route: 048
  14. LYRICA [Concomitant]
     Active Substance: PREGABALIN
     Route: 048
     Dates: start: 20160507
  15. EPOGIN [Concomitant]
     Active Substance: ERYTHROPOIETIN
     Dates: start: 20160510, end: 20160705
  16. VELPHORO [Suspect]
     Active Substance: FERRIC OXYHYDROXIDE
     Indication: HYPERPHOSPHATAEMIA
     Route: 048
     Dates: start: 20160614, end: 20160704
  17. VELPHORO [Suspect]
     Active Substance: FERRIC OXYHYDROXIDE
     Route: 048
     Dates: start: 20160705, end: 20160923
  18. EPOETIN ALFA BS [Suspect]
     Active Substance: ERYTHROPOIETIN
     Dates: start: 20161222, end: 20170321
  19. EPOETIN ALFA BS [Suspect]
     Active Substance: ERYTHROPOIETIN
     Dates: start: 20170323, end: 20170404
  20. PREDNISOLONE. [Concomitant]
     Active Substance: PREDNISOLONE
     Route: 048
     Dates: start: 20170303
  21. EPOETIN ALFA BS [Suspect]
     Active Substance: ERYTHROPOIETIN
     Dates: start: 20160707, end: 20160802
  22. EPOETIN ALFA BS [Suspect]
     Active Substance: ERYTHROPOIETIN
     Dates: start: 20160804, end: 20160818
  23. EPOETIN ALFA BS [Suspect]
     Active Substance: ERYTHROPOIETIN
     Dates: start: 20170613
  24. EPOETIN ALFA BS [Suspect]
     Active Substance: ERYTHROPOIETIN
     Dates: start: 20161108, end: 20161220
  25. FORTEO [Concomitant]
     Active Substance: TERIPARATIDE
     Dates: start: 20160109, end: 20170304

REACTIONS (4)
  - Red blood cell count increased [Recovering/Resolving]
  - Haematocrit increased [Recovered/Resolved]
  - Upper respiratory tract inflammation [Recovered/Resolved]
  - Haemoglobin increased [Recovered/Resolved]

NARRATIVE: CASE EVENT DATE: 20160906
